FAERS Safety Report 12131879 (Version 2)
Quarter: 2016Q1

REPORT INFORMATION
  Report Type: Spontaneous
  Country: US (occurrence: US)
  Receive Date: 20160301
  Receipt Date: 20160324
  Transmission Date: 20160526
  Serious: No
  Sender: FDA-Public Use
  Company Number: US-JNJFOC-20160216415

PATIENT
  Age: 17 Year
  Sex: Female
  Weight: 52.7 kg

DRUGS (2)
  1. BIOTIN [Concomitant]
     Active Substance: BIOTIN
     Route: 065
  2. REMICADE [Suspect]
     Active Substance: INFLIXIMAB
     Indication: CROHN^S DISEASE
     Dosage: EVERY 6-8 WEEKS.
     Route: 042
     Dates: start: 201412, end: 20160208

REACTIONS (1)
  - Alopecia [Not Recovered/Not Resolved]
